FAERS Safety Report 18207714 (Version 1)
Quarter: 2020Q3

REPORT INFORMATION
  Report Type: Spontaneous
  Country: US (occurrence: US)
  Receive Date: 20200828
  Receipt Date: 20200828
  Transmission Date: 20201103
  Serious: No
  Sender: FDA-Public Use
  Company Number: US-PFIZER INC-2020331952

PATIENT

DRUGS (1)
  1. ATGAM [Suspect]
     Active Substance: EQUINE THYMOCYTE IMMUNE GLOBULIN
     Indication: IMMUNISATION
     Dosage: UNK
     Route: 023
     Dates: start: 202008

REACTIONS (1)
  - Skin test positive [Unknown]

NARRATIVE: CASE EVENT DATE: 202008
